FAERS Safety Report 7441000-7 (Version None)
Quarter: 2011Q2

REPORT INFORMATION
  Report Type: 
  Country: None (occurrence: None)
  Receive Date: 20110427
  Receipt Date: 20090930
  Transmission Date: 20111010
  Serious: Yes (Death, Other)
  Sender: FDA-Public Use
  Company Number: US-BAYER-200934341NA

PATIENT
  Age: 52 Year
  Sex: Female
  Weight: 63.9 kg

DRUGS (15)
  1. LASIX [Concomitant]
     Dosage: 40 MG, BID
     Route: 048
  2. HEPARIN [Concomitant]
     Dosage: UNK
     Route: 042
  3. MANNITOL [Concomitant]
     Dosage: UNK
     Route: 042
  4. OMNIPAQUE 140 [Concomitant]
     Indication: CATHETERISATION CARDIAC
     Dosage: UNK
     Dates: start: 19970102, end: 19970102
  5. TRASYLOL [Suspect]
     Indication: MITRAL VALVE REPLACEMENT
     Dosage: LOADING DOSE: TRASYLOL 200ML + AMICAR 400ML TO PRIME + ANESTHESIA USED 400 ML OF TRASYLOL
     Dates: start: 19970106, end: 19970106
  6. TRASYLOL [Suspect]
     Dosage: 400 ML
     Dates: start: 19970106, end: 19970106
  7. PLASMA [Concomitant]
     Dosage: UNK
  8. PROTAMINE SULFATE [Concomitant]
     Dosage: UNK
     Route: 042
  9. RED BLOOD CELLS [Concomitant]
     Dosage: UNK
  10. ALBUMIN NOS [Concomitant]
     Dosage: UNK
     Route: 042
  11. DOBUTREX [Concomitant]
     Dosage: UNK
     Route: 042
  12. PLATELETS [Concomitant]
     Dosage: UNK
     Dates: start: 19970106
  13. PREDNISONE [Concomitant]
     Dosage: 5 MG, BID
  14. NEORAL [Concomitant]
     Dosage: 100 MG, BID
  15. DOPAMINE HCL [Concomitant]
     Dosage: UNK
     Route: 042

REACTIONS (14)
  - UNEVALUABLE EVENT [None]
  - ANXIETY [None]
  - ANHEDONIA [None]
  - FEAR [None]
  - NERVOUSNESS [None]
  - RENAL INJURY [None]
  - RENAL FAILURE [None]
  - EMOTIONAL DISTRESS [None]
  - DEATH [None]
  - PAIN [None]
  - DEPRESSION [None]
  - MULTI-ORGAN FAILURE [None]
  - INJURY [None]
  - DISABILITY [None]
